FAERS Safety Report 19287974 (Version 1)
Quarter: 2021Q2

REPORT INFORMATION
  Report Type: Spontaneous
  Country: NO (occurrence: NO)
  Receive Date: 20210521
  Receipt Date: 20210521
  Transmission Date: 20210717
  Serious: Yes (Death, Hospitalization, Other)
  Sender: FDA-Public Use
  Company Number: NO-PURDUE-USA-2021-0262425

PATIENT
  Age: 30 Year
  Sex: Male

DRUGS (2)
  1. NON?PMN BUPRENORPHINE [Suspect]
     Active Substance: BUPRENORPHINE
     Indication: DRUG DEPENDENCE
     Dosage: UNK
     Route: 051
  2. METHADONE [Suspect]
     Active Substance: METHADONE HYDROCHLORIDE
     Indication: DRUG DEPENDENCE
     Dosage: UNK
     Route: 042

REACTIONS (9)
  - Myalgia [Unknown]
  - Intentional product use issue [Unknown]
  - Multiple organ dysfunction syndrome [Fatal]
  - Drug abuse [Unknown]
  - Weight decreased [Unknown]
  - Type 1 diabetes mellitus [Unknown]
  - Skin infection [Unknown]
  - Connective tissue disorder [Unknown]
  - Hepatitis C [Unknown]
